FAERS Safety Report 14068957 (Version 1)
Quarter: 2017Q4

REPORT INFORMATION
  Report Type: Report from Study
  Country: CA (occurrence: CA)
  Receive Date: 20171010
  Receipt Date: 20171010
  Transmission Date: 20180321
  Serious: Yes (Other)
  Sender: FDA-Public Use
  Company Number: CA-BRISTOL-MYERS SQUIBB COMPANY-BMS-2017-089424

PATIENT
  Sex: Female

DRUGS (1)
  1. ABATACEPT [Suspect]
     Active Substance: ABATACEPT
     Indication: RHEUMATOID ARTHRITIS
     Dosage: 750 MG, Q4WK
     Route: 042
     Dates: start: 20170621

REACTIONS (5)
  - Cough [Recovering/Resolving]
  - Pain in extremity [Unknown]
  - Oropharyngeal pain [Recovered/Resolved]
  - Atrial fibrillation [Unknown]
  - Dyspnoea [Recovered/Resolved]
